FAERS Safety Report 5062431-9 (Version None)
Quarter: 2006Q3

REPORT INFORMATION
  Report Type: 
  Country: None (occurrence: None)
  Receive Date: 20060721
  Receipt Date: 20060707
  Transmission Date: 20061208
  Serious: Yes (Life-Threatening)
  Sender: FDA-Public Use
  Company Number: 2006-142668-NL

PATIENT
  Age: 58 Year
  Sex: Male

DRUGS (23)
  1. DANAPAROID SODIUM [Suspect]
     Indication: DISSEMINATED INTRAVASCULAR COAGULATION
     Dosage: INTRAVENOUS DRIP
     Route: 041
     Dates: start: 20051227, end: 20051228
  2. DANAPAROID SODIUM [Suspect]
     Indication: DISSEMINATED INTRAVASCULAR COAGULATION
     Dosage: INTRAVENOUS DRIP
     Route: 041
     Dates: start: 20051229, end: 20060109
  3. DANAPAROID SODIUM [Suspect]
     Indication: DISSEMINATED INTRAVASCULAR COAGULATION
     Dosage: INTRAVENOUS DRIP
     Route: 041
     Dates: start: 20060110, end: 20060110
  4. TRANEXAMIC ACID [Concomitant]
  5. DAUNOMYCIN [Concomitant]
  6. CYTARABINE [Concomitant]
  7. ANTITHROMBIN III [Concomitant]
  8. MINOPHAGEN C [Concomitant]
  9. CEFTAZIDIME [Concomitant]
  10. ISEPAMICIN SULFATE [Concomitant]
  11. MICAFUNGIN SODIUM [Concomitant]
  12. MEROPENEM TRIHYDRATE [Concomitant]
  13. CLINDAMYCIN HYDROCHLORIDE [Concomitant]
  14. NIFEDIPINE [Concomitant]
  15. LEVOTHYROXINE SODIUM [Concomitant]
  16. TRETINOIN [Concomitant]
  17. ALLOPURINOL [Concomitant]
  18. POTASSIUM CHLORIDE [Concomitant]
  19. FUROSEMIDE [Concomitant]
  20. SPIRONOLACTONE [Concomitant]
  21. PLATELETS [Concomitant]
  22. RED BLOOD CELLS [Concomitant]
  23. PLASMA PROTEIN FRACTION (HUMAN) [Concomitant]

REACTIONS (15)
  - ACTIVATED PARTIAL THROMBOPLASTIN TIME PROLONGED [None]
  - ANAEMIA [None]
  - ASPARTATE AMINOTRANSFERASE INCREASED [None]
  - BLOOD ALBUMIN DECREASED [None]
  - BLOOD FIBRINOGEN INCREASED [None]
  - BLOOD LACTATE DEHYDROGENASE INCREASED [None]
  - BLOOD POTASSIUM DECREASED [None]
  - BLOOD UREA INCREASED [None]
  - FIBRIN D DIMER INCREASED [None]
  - FIBRIN DEGRADATION PRODUCTS INCREASED [None]
  - GAMMA-GLUTAMYLTRANSFERASE INCREASED [None]
  - PLATELET COUNT DECREASED [None]
  - PROTHROMBIN TIME PROLONGED [None]
  - RED BLOOD CELL COUNT DECREASED [None]
  - WHITE BLOOD CELL COUNT DECREASED [None]
